FAERS Safety Report 19924456 (Version 2)
Quarter: 2021Q4

REPORT INFORMATION
  Report Type: Spontaneous
  Country: JP (occurrence: JP)
  Receive Date: 20211006
  Receipt Date: 20211014
  Transmission Date: 20220303
  Serious: Yes (Death, Other)
  Sender: FDA-Public Use
  Company Number: JP-UCBJ-CD202106062UCBPHAPROD

PATIENT
  Age: 30 Year
  Sex: Female

DRUGS (3)
  1. LEVETIRACETAM [Suspect]
     Active Substance: LEVETIRACETAM
     Indication: Product used for unknown indication
     Dosage: UNK
     Route: 048
     Dates: start: 201902, end: 201905
  2. LEVETIRACETAM [Suspect]
     Active Substance: LEVETIRACETAM
     Indication: Product used for unknown indication
     Dosage: UNK
     Route: 041
     Dates: start: 201902, end: 201902
  3. TEMODAL [Suspect]
     Active Substance: TEMOZOLOMIDE
     Indication: Product used for unknown indication
     Dosage: UNK

REACTIONS (3)
  - Astrocytoma [Fatal]
  - Drug reaction with eosinophilia and systemic symptoms [Unknown]
  - Toxic epidermal necrolysis [Unknown]
